FAERS Safety Report 9769623 (Version 1)
Quarter: 2013Q4

REPORT INFORMATION
  Report Type: Spontaneous
  Country: US (occurrence: US)
  Receive Date: 20131218
  Receipt Date: 20131218
  Transmission Date: 20140711
  Serious: Yes (Other)
  Sender: FDA-Public Use
  Company Number: US-009507513-1312USA007286

PATIENT
  Age: 82 Year
  Sex: Female

DRUGS (1)
  1. DULERA [Suspect]
     Indication: CHRONIC OBSTRUCTIVE PULMONARY DISEASE
     Dosage: 2 DF, QD (2PUFFS/ONCE DAILY)
     Route: 055
     Dates: start: 201309, end: 20131213

REACTIONS (1)
  - Aphonia [Not Recovered/Not Resolved]
